FAERS Safety Report 6398323-2 (Version None)
Quarter: 2009Q4

REPORT INFORMATION
  Report Type: 
  Country: None (occurrence: None)
  Receive Date: 20091013
  Receipt Date: 20091002
  Transmission Date: 20100525
  Serious: Yes (Other)
  Sender: FDA-Public Use
  Company Number: CL-PFIZER INC-2009278504

PATIENT

DRUGS (1)
  1. CELEBRA [Suspect]
     Dosage: UNK
     Dates: start: 20090925, end: 20090926

REACTIONS (6)
  - DYSPNOEA [None]
  - HYPOAESTHESIA [None]
  - HYPOKINESIA [None]
  - LOSS OF CONSCIOUSNESS [None]
  - SPEECH DISORDER [None]
  - SWELLING [None]
